FAERS Safety Report 20543721 (Version 8)
Quarter: 2022Q2

REPORT INFORMATION
  Report Type: Report from Study
  Country: IL (occurrence: IL)
  Receive Date: 20220303
  Receipt Date: 20220625
  Transmission Date: 20220721
  Serious: Yes (Hospitalization, Other)
  Sender: FDA-Public Use
  Company Number: IL-ABBVIE-22K-082-4299061-00

PATIENT
  Sex: Male

DRUGS (4)
  1. CARBIDOPA\LEVODOPA [Interacting]
     Active Substance: CARBIDOPA\LEVODOPA
     Indication: Parkinson^s disease
     Dosage: MORNING DOSAGE(ML) 10.0, CONTINUOUS DOSAGE (ML/H) 2.6, EXTRA DOSAGE (ML) 2.0
     Route: 050
     Dates: start: 20210525
  2. CARBIDOPA\LEVODOPA [Interacting]
     Active Substance: CARBIDOPA\LEVODOPA
     Dosage: MORNING DOSAGE(ML) 11.0, CONTINUOUS DOSAGE (ML/H) 2.4, EXTRA DOSAGE (ML) 1.2
     Route: 050
  3. CARBIDOPA\LEVODOPA [Interacting]
     Active Substance: CARBIDOPA\LEVODOPA
     Dosage: MORNING DOSAGE(ML) 11.0, CONTINUOUS DOSAGE (ML/H) 2.2, EXTRA DOSAGE (ML) 1.2
     Route: 050
  4. ZALDIAR [Interacting]
     Active Substance: ACETAMINOPHEN\TRAMADOL HYDROCHLORIDE
     Indication: Product used for unknown indication
     Route: 065
     Dates: start: 20220318

REACTIONS (8)
  - Spinal cord compression [Unknown]
  - Intervertebral disc protrusion [Unknown]
  - Muscular weakness [Unknown]
  - Hypoaesthesia [Unknown]
  - Drug interaction [Unknown]
  - Procedural pain [Recovered/Resolved]
  - On and off phenomenon [Unknown]
  - Dyskinesia [Unknown]
